FAERS Safety Report 14134992 (Version 1)
Quarter: 2017Q4

REPORT INFORMATION
  Report Type: Spontaneous
  Country: US (occurrence: US)
  Receive Date: 20171027
  Receipt Date: 20171027
  Transmission Date: 20180321
  Serious: No
  Sender: FDA-Public Use
  Company Number: US-TEVA-817702USA

PATIENT
  Age: 65 Year
  Sex: Female

DRUGS (2)
  1. ARMODAFINIL. [Suspect]
     Active Substance: ARMODAFINIL
     Indication: HYPERSOMNIA
     Dosage: 250 MILLIGRAM DAILY;
     Dates: start: 201706
  2. VITAMIN B12 [Concomitant]
     Active Substance: CYANOCOBALAMIN

REACTIONS (3)
  - Drug dose omission [Unknown]
  - Drug effect decreased [Unknown]
  - Palpitations [Unknown]

NARRATIVE: CASE EVENT DATE: 20171013
